FAERS Safety Report 8778851 (Version 3)
Quarter: 2012Q4

REPORT INFORMATION
  Report Type: 
  Country: IT (occurrence: IT)
  Receive Date: 20120912
  Receipt Date: 20121018
  Transmission Date: 20130627
  Serious: Yes (Hospitalization)
  Sender: FDA-Public Use
  Company Number: IT-ELI_LILLY_AND_COMPANY-IT201209001294

PATIENT
  Age: 85 Year
  Sex: Male

DRUGS (4)
  1. ZYPREXA [Suspect]
     Indication: PSYCHOTIC DISORDER
     Dosage: 5 mg, qd
     Route: 048
     Dates: start: 20120618, end: 20120818
  2. TEGRETOL [Concomitant]
     Dosage: 2 DF, UNK
     Route: 048
  3. GARDENALE [Concomitant]
     Dosage: 1 DF, UNK
     Route: 048
  4. EGIBREN [Concomitant]
     Dosage: 1 DF, UNK
     Route: 048

REACTIONS (2)
  - Hyponatraemia [Recovered/Resolved]
  - Motor dysfunction [Unknown]
